FAERS Safety Report 8265546-7 (Version None)
Quarter: 2012Q2

REPORT INFORMATION
  Report Type: 
  Country: None (occurrence: None)
  Receive Date: 20120406
  Receipt Date: 20120402
  Transmission Date: 20120825
  Serious: Yes (Other)
  Sender: FDA-Public Use
  Company Number: US-PFIZER INC-2012083393

PATIENT
  Sex: Female
  Weight: 77.098 kg

DRUGS (10)
  1. PRIMIDONE [Concomitant]
     Dosage: UNK
  2. NEURONTIN [Suspect]
     Indication: FAMILIAL TREMOR
     Dosage: 600 MG, 3X/DAY
     Route: 048
  3. PREMARIN [Concomitant]
     Dosage: UNK
  4. CLONAZEPAM [Concomitant]
     Dosage: UNK
  5. ISOSORBIDE [Concomitant]
     Indication: CARDIAC DISORDER
     Dosage: UNK
  6. SYNTHROID [Concomitant]
     Dosage: UNK
  7. TRILIPIX [Concomitant]
     Dosage: UNK
  8. CRESTOR [Concomitant]
     Dosage: UNK
  9. UBIQUINONE 12 [Concomitant]
     Indication: CARDIAC DISORDER
     Dosage: UNK
  10. MELOXICAM [Concomitant]
     Dosage: UNK

REACTIONS (6)
  - STERNAL FRACTURE [None]
  - UPPER LIMB FRACTURE [None]
  - PAIN [None]
  - RIB FRACTURE [None]
  - ASTHMA [None]
  - ROAD TRAFFIC ACCIDENT [None]
